FAERS Safety Report 20314364 (Version 1)
Quarter: 2022Q1

REPORT INFORMATION
  Report Type: Spontaneous
  Country: US (occurrence: US)
  Receive Date: 20220109
  Receipt Date: 20220109
  Transmission Date: 20220423
  Serious: No
  Sender: FDA-Public Use
  Company Number: US-SA-SAC20220106000598

PATIENT
  Sex: Male

DRUGS (15)
  1. DUPIXENT [Suspect]
     Active Substance: DUPILUMAB
     Indication: Dermatitis atopic
     Dosage: 300 MG, QOW
     Route: 058
     Dates: start: 20211209
  2. ASPIRIN [Concomitant]
     Active Substance: ASPIRIN
  3. TAMSULOSIN HYDROCHLORIDE [Concomitant]
     Active Substance: TAMSULOSIN HYDROCHLORIDE
  4. PREGABALIN [Concomitant]
     Active Substance: PREGABALIN
  5. NOVOLOG [Concomitant]
     Active Substance: INSULIN ASPART
  6. CILOSTAZOL [Concomitant]
     Active Substance: CILOSTAZOL
  7. LISINOPRIL [Concomitant]
     Active Substance: LISINOPRIL
  8. MONTELUKAST SODIUM [Concomitant]
     Active Substance: MONTELUKAST SODIUM
  9. LANTUS [Concomitant]
     Active Substance: INSULIN GLARGINE
  10. OZEMPIC [Concomitant]
     Active Substance: SEMAGLUTIDE
  11. OMEPRAZOLE [Concomitant]
     Active Substance: OMEPRAZOLE
  12. ATORVASTATIN CALCIUM [Concomitant]
     Active Substance: ATORVASTATIN CALCIUM
  13. METFORMIN HYDROCHLORIDE [Concomitant]
     Active Substance: METFORMIN HYDROCHLORIDE
  14. FLUARIX NOS [Concomitant]
     Active Substance: INFLUENZA VIRUS VACCINE
  15. ACTRAPID [Concomitant]
     Active Substance: INSULIN HUMAN

REACTIONS (2)
  - Blood glucose abnormal [Unknown]
  - Blood pressure abnormal [Unknown]
